FAERS Safety Report 9309401 (Version 1)
Quarter: 2013Q2

REPORT INFORMATION
  Report Type: Spontaneous
  Country: US (occurrence: US)
  Receive Date: 20130525
  Receipt Date: 20130525
  Transmission Date: 20140414
  Serious: No
  Sender: FDA-Public Use
  Company Number: US-BRISTOL-MYERS SQUIBB COMPANY-18706556

PATIENT
  Sex: Female

DRUGS (2)
  1. BYDUREON [Suspect]
     Indication: TYPE 2 DIABETES MELLITUS
     Dosage: DRUG PREVIOUSLY DISCONTINUED
     Route: 058
     Dates: start: 20130126
  2. METFORMIN [Concomitant]

REACTIONS (7)
  - Malaise [Recovered/Resolved]
  - Weight decreased [Unknown]
  - Somnolence [Recovered/Resolved]
  - Injection site pain [Recovering/Resolving]
  - Nausea [Recovered/Resolved]
  - Diarrhoea [Recovered/Resolved]
  - Constipation [Recovered/Resolved]
